FAERS Safety Report 5655056-5 (Version None)
Quarter: 2008Q1

REPORT INFORMATION
  Report Type: 
  Country: None (occurrence: None)
  Receive Date: 20080307
  Receipt Date: 20071109
  Transmission Date: 20080703
  Serious: No
  Sender: FDA-Public Use
  Company Number: A0693598A

PATIENT
  Age: 71 Year
  Sex: Female

DRUGS (7)
  1. REQUIP [Suspect]
     Indication: RESTLESS LEGS SYNDROME
     Route: 048
  2. GABAPENTIN [Concomitant]
  3. LISINOPRIL [Concomitant]
  4. SIMVASTATIN [Concomitant]
  5. TRIAMTERENE [Concomitant]
  6. CYMBALTA [Concomitant]
  7. ESTROPIPATE [Concomitant]

REACTIONS (1)
  - URTICARIA [None]
